FAERS Safety Report 6389479-6 (Version None)
Quarter: 2009Q4

REPORT INFORMATION
  Report Type: 
  Country: None (occurrence: None)
  Receive Date: 20091006
  Receipt Date: 20090924
  Transmission Date: 20100525
  Serious: Yes (Disabling)
  Sender: FDA-Public Use
  Company Number: JP-ROCHE-635563

PATIENT
  Sex: Male
  Weight: 70 kg

DRUGS (6)
  1. PEGASYS [Suspect]
     Indication: HEPATITIS C
     Route: 058
     Dates: start: 20090423, end: 20090501
  2. ACINON [Concomitant]
     Route: 048
     Dates: start: 20090422
  3. IRBESARTAN [Concomitant]
     Dosage: DRUG NAME: IRBETAN
     Route: 048
  4. MYONAL [Concomitant]
     Route: 048
  5. METHYCOBAL [Concomitant]
     Route: 048
  6. MAGMITT [Concomitant]
     Route: 048

REACTIONS (4)
  - CEREBRAL HAEMORRHAGE [None]
  - CEREBRAL INFARCTION [None]
  - PYREXIA [None]
  - SYSTEMIC LUPUS ERYTHEMATOSUS [None]
